FAERS Safety Report 8314511-X (Version None)
Quarter: 2012Q2

REPORT INFORMATION
  Report Type: 
  Country: None (occurrence: None)
  Receive Date: 20120426
  Receipt Date: 20120424
  Transmission Date: 20120825
  Serious: Yes (Hospitalization)
  Sender: FDA-Public Use
  Company Number: FR-ROCHE-1062923

PATIENT
  Sex: Male

DRUGS (10)
  1. MYAMBUTOL [Suspect]
     Indication: PULMONARY TUBERCULOSIS
     Dates: start: 20100802, end: 20100916
  2. MYAMBUTOL [Suspect]
     Dates: start: 20100929, end: 20110422
  3. RIFADIN [Suspect]
     Indication: PULMONARY TUBERCULOSIS
     Dates: start: 20100929, end: 20110422
  4. CITALOPRAM HYDROBROMIDE [Concomitant]
     Dosage: 1 TABLET IN MORNING
  5. RIFATER [Suspect]
     Indication: PULMONARY TUBERCULOSIS
     Dates: start: 20100802
  6. MABTHERA [Suspect]
     Indication: NON-HODGKIN'S LYMPHOMA
     Dates: start: 20100719, end: 20101119
  7. ALLOPURINOL [Suspect]
     Indication: HYPERURICAEMIA
     Route: 048
     Dates: start: 20100816
  8. OXAZEPAM [Concomitant]
     Dosage: 1/2 TABLET IN MORNING AND AT LUNCH TIME
  9. ZOLPIDEM TARTRATE [Concomitant]
  10. MOVICOL [Concomitant]

REACTIONS (6)
  - RASH ERYTHEMATOUS [None]
  - DRUG RASH WITH EOSINOPHILIA AND SYSTEMIC SYMPTOMS [None]
  - MONONUCLEOSIS SYNDROME [None]
  - LYMPHOPENIA [None]
  - EOSINOPHILIA [None]
  - OEDEMA [None]
